FAERS Safety Report 14338602 (Version 1)
Quarter: 2017Q4

REPORT INFORMATION
  Report Type: Spontaneous
  Country: CA (occurrence: CA)
  Receive Date: 20171229
  Receipt Date: 20171229
  Transmission Date: 20180321
  Serious: Yes (Other)
  Sender: FDA-Public Use
  Company Number: CA-PFIZER INC-2017544605

PATIENT
  Age: 80 Year
  Sex: Female

DRUGS (1)
  1. DILANTIN [Suspect]
     Active Substance: PHENYTOIN
     Indication: SEIZURE
     Dosage: 300 MG (3 DF 100 MG), 1X/DAY AT NIGHT
     Dates: start: 2017

REACTIONS (3)
  - Eye disorder [Unknown]
  - Enteritis infectious [Unknown]
  - Dizziness [Unknown]

NARRATIVE: CASE EVENT DATE: 2017
